FAERS Safety Report 8612386-2 (Version None)
Quarter: 2012Q3

REPORT INFORMATION
  Report Type: 
  Country: None (occurrence: None)
  Receive Date: 20120822
  Receipt Date: 20120809
  Transmission Date: 20120928
  Serious: Yes (Hospitalization)
  Sender: FDA-Public Use
  Company Number: FR-FRI-1000037824

PATIENT
  Sex: Male

DRUGS (11)
  1. INNOVAR [Suspect]
     Route: 055
     Dates: start: 20100101, end: 20120529
  2. TADENAN [Concomitant]
  3. NEBIVOLOL [Suspect]
     Route: 048
     Dates: start: 20110401, end: 20120531
  4. LASIX [Suspect]
     Dosage: 20 MG
     Route: 048
     Dates: start: 20080515, end: 20120529
  5. QVAR 40 [Suspect]
     Route: 055
     Dates: start: 20050101, end: 20120529
  6. SINTROM [Concomitant]
  7. PRAZEPAM [Concomitant]
  8. RAMIPRIL [Suspect]
     Dosage: 5 MG
     Route: 048
     Dates: start: 20111026
  9. ASPIRIN [Concomitant]
  10. RAMIPRIL [Suspect]
     Dosage: 2.5 MG
     Route: 048
     Dates: start: 20110420, end: 20111025
  11. REPAGLINIDE [Suspect]
     Route: 048
     Dates: start: 20110701, end: 20120530

REACTIONS (1)
  - HYPONATRAEMIA [None]
